FAERS Safety Report 6227797-2 (Version None)
Quarter: 2009Q2

REPORT INFORMATION
  Report Type: 
  Country: None (occurrence: None)
  Receive Date: 20090612
  Receipt Date: 20090601
  Transmission Date: 20091009
  Serious: Yes (Other)
  Sender: FDA-Public Use
  Company Number: A0731196A

PATIENT
  Age: 34 Year
  Sex: Male
  Weight: 135.5 kg

DRUGS (10)
  1. AVANDIA [Suspect]
     Dosage: 8MG PER DAY
     Route: 048
     Dates: start: 20030604, end: 20070704
  2. GLUCOPHAGE [Concomitant]
  3. ATIVAN [Concomitant]
  4. GLIPIZIDE [Concomitant]
  5. DARVOCET [Concomitant]
  6. LOPID [Concomitant]
  7. TIAZAC [Concomitant]
  8. ASPIRIN [Concomitant]
  9. TAGAMET [Concomitant]
  10. ACTOS [Concomitant]

REACTIONS (3)
  - INJURY [None]
  - MYOCARDIAL INFARCTION [None]
  - PAIN [None]
